FAERS Safety Report 10489309 (Version 15)
Quarter: 2016Q1

REPORT INFORMATION
  Report Type: Report from Study
  Country: IL (occurrence: IL)
  Receive Date: 20141002
  Receipt Date: 20160122
  Transmission Date: 20160525
  Serious: Yes (Hospitalization)
  Sender: FDA-Public Use
  Company Number: PHHY2014IL105508

PATIENT
  Sex: Male
  Weight: 65 kg

DRUGS (1)
  1. TASIGNA [Suspect]
     Active Substance: NILOTINIB
     Indication: CHRONIC MYELOID LEUKAEMIA
     Dosage: 400 MG, BID
     Route: 048
     Dates: start: 20080804

REACTIONS (22)
  - Rectal haemorrhage [Recovering/Resolving]
  - Sleep disorder [Not Recovered/Not Resolved]
  - Weight decreased [Not Recovered/Not Resolved]
  - Nervousness [Recovering/Resolving]
  - Dyspepsia [Recovering/Resolving]
  - Hyperchlorhydria [Unknown]
  - Depression [Not Recovered/Not Resolved]
  - Blood urine present [Unknown]
  - Mood altered [Unknown]
  - Haematochezia [Unknown]
  - Weight decreased [Recovered/Resolved]
  - Haemorrhoidal haemorrhage [Recovering/Resolving]
  - Iron deficiency [Unknown]
  - Decreased appetite [Recovering/Resolving]
  - Haematemesis [Not Recovered/Not Resolved]
  - Arthralgia [Recovering/Resolving]
  - Low density lipoprotein increased [Unknown]
  - Dizziness [Recovered/Resolved]
  - Gastritis [Unknown]
  - Urinary tract infection [Not Recovered/Not Resolved]
  - Burning sensation [Unknown]
  - Anaemia [Unknown]

NARRATIVE: CASE EVENT DATE: 2008
